FAERS Safety Report 7546610-4 (Version None)
Quarter: 2011Q2

REPORT INFORMATION
  Report Type: 
  Country: None (occurrence: None)
  Receive Date: 20110614
  Receipt Date: 20110531
  Transmission Date: 20111010
  Serious: Yes (Other)
  Sender: FDA-Public Use
  Company Number: US-BAYER-200928284NA

PATIENT
  Age: 25 Year
  Sex: Female
  Weight: 96 kg

DRUGS (11)
  1. IMITREX [Concomitant]
     Indication: MIGRAINE
     Dosage: 100 MG, PRN
     Route: 048
  2. YAZ [Suspect]
     Indication: CONTRACEPTION
  3. ASMANEX TWISTHALER [Concomitant]
     Indication: ASTHMA
     Dosage: UNK UNK, CONT
  4. YAZ [Suspect]
     Indication: MENSTRUAL DISORDER
     Dosage: 1 DF (DAILY DOSE), QD, ORAL
     Route: 048
     Dates: start: 20070701, end: 20071207
  5. YASMIN [Suspect]
     Indication: PRODUCT USED FOR UNKNOWN INDICATION
     Route: 048
     Dates: start: 20070501, end: 20070715
  6. TOPAMAX [Concomitant]
     Indication: MIGRAINE
     Route: 048
  7. NAPROXEN [Concomitant]
  8. EFFEXOR [Concomitant]
     Indication: DEPRESSION
     Route: 048
  9. IBUPROFEN [Concomitant]
     Indication: PAIN
     Dosage: UNK
     Dates: start: 20071206
  10. GLUCOPHAGE [Concomitant]
     Indication: DIABETES MELLITUS
  11. EFFEXOR XR [Concomitant]
     Indication: DEPRESSION
     Dosage: 150 MG, QD

REACTIONS (4)
  - PAIN [None]
  - OEDEMA [None]
  - OEDEMA PERIPHERAL [None]
  - DEEP VEIN THROMBOSIS [None]
